FAERS Safety Report 13857524 (Version 2)
Quarter: 2017Q3

REPORT INFORMATION
  Report Type: Report from Study
  Country: US (occurrence: US)
  Receive Date: 20170811
  Receipt Date: 20170831
  Transmission Date: 20171127
  Serious: Yes (Other)
  Sender: FDA-Public Use
  Company Number: US-ROCHE-1975325

PATIENT

DRUGS (4)
  1. NITROGLYCERIN. [Concomitant]
     Active Substance: NITROGLYCERIN
     Indication: VASODILATATION
     Dosage: 100 UG (ADULTS), 20 UG (CHILDREN))
     Route: 065
  2. ALTEPLASE. [Suspect]
     Active Substance: ALTEPLASE
     Indication: FROSTBITE
     Dosage: 0.5-1 MG/EXTREMITY/H
     Route: 013
  3. ASPIRIN. [Concomitant]
     Active Substance: ASPIRIN
     Route: 065
  4. HEPARIN [Concomitant]
     Active Substance: HEPARIN SODIUM
     Dosage: TITRATED TO SUBTHERAPEUTIC PTT GOAL OF 40-60S
     Route: 065

REACTIONS (2)
  - Haematoma [Unknown]
  - Vascular pseudoaneurysm [Unknown]
